FAERS Safety Report 16007509 (Version 5)
Quarter: 2019Q2

REPORT INFORMATION
  Report Type: Spontaneous
  Country: CA (occurrence: CA)
  Receive Date: 20190226
  Receipt Date: 20190520
  Transmission Date: 20190711
  Serious: Yes (Death, Hospitalization, Other)
  Sender: FDA-Public Use
  Company Number: CA-PFIZER INC-2019017629

PATIENT
  Age: 72 Year
  Sex: Female

DRUGS (17)
  1. SERAX [OXAZEPAM] [Concomitant]
     Indication: INSOMNIA
     Dosage: 15 MG, AT BEDTIME AS NEEDED
     Route: 048
  2. TYLENOL 8HR [Concomitant]
     Active Substance: ACETAMINOPHEN
     Indication: HEADACHE
     Dosage: 650 MG, EVERY 4 HRS, AS NEEDED
     Route: 048
  3. REMERON [Concomitant]
     Active Substance: MIRTAZAPINE
     Dosage: 15 MG, BED TIME
     Route: 048
  4. ZOPICLONE [Concomitant]
     Active Substance: ZOPICLONE
     Dosage: 5 MG, AT BED TIME, AS NEEDED
     Route: 048
  5. PREDNISONE. [Concomitant]
     Active Substance: PREDNISONE
     Dosage: 5 MG, 2X/DAY
     Route: 048
  6. ASPIRIN 81 [Concomitant]
     Active Substance: ASPIRIN
     Dosage: 81 MG, 1X/DAY
     Route: 048
  7. INLYTA [Suspect]
     Active Substance: AXITINIB
     Dosage: 5 MG CYCLIC (2X/DAY)
     Route: 048
     Dates: start: 20190125
  8. POLYSTYRENE SULFONATE CA [Concomitant]
     Dosage: 15 G, 1X/DAY
     Route: 048
  9. LORAZEPAM. [Concomitant]
     Active Substance: LORAZEPAM
     Indication: ANXIETY
     Dosage: 0.5-1MG PO EVERY 8 HOURS AS NEEDED
     Route: 048
  10. DIOVOL [DONEPEZIL HYDROCHLORIDE] [Concomitant]
     Indication: DYSPEPSIA
     Dosage: 30 ML, EVERY 6 HOURS
  11. LORAZEPAM. [Concomitant]
     Active Substance: LORAZEPAM
     Indication: SLEEP DISORDER
     Dosage: 0.5-1MG  EVERY 8 HOURS AS NEEDED
     Route: 060
  12. PANTOLOC [PANTOPRAZOLE] [Concomitant]
     Active Substance: PANTOPRAZOLE SODIUM
     Dosage: 40 MG, 1X/DAY
  13. HEPARIN [Concomitant]
     Active Substance: HEPARIN SODIUM
     Dosage: 5000 U/0.5ML, 2X/DAY
     Route: 058
  14. ATROVENT [Concomitant]
     Active Substance: IPRATROPIUM BROMIDE
     Indication: DYSPNOEA
     Dosage: 4 PUFFS INH 4 TIMES DAILY AS NEEDED
  15. SYNTHROID [Concomitant]
     Active Substance: LEVOTHYROXINE SODIUM
     Dosage: 100 UG, 1X/DAY
     Route: 048
  16. MAXERAN [Concomitant]
     Active Substance: METOCLOPRAMIDE HYDROCHLORIDE
     Dosage: 10 MG, EVERY 6 HOURS, AS NEEDED
     Route: 048
  17. BETALOC [METOPROLOL TARTRATE] [Concomitant]
     Active Substance: METOPROLOL TARTRATE
     Dosage: UNK UNK, 2X/DAY (12.5 MG)
     Route: 048

REACTIONS (5)
  - Haemorrhage [Unknown]
  - Atrial flutter [Recovered/Resolved]
  - Anaemia [Unknown]
  - Cardiac disorder [Unknown]
  - Neoplasm progression [Fatal]
